FAERS Safety Report 25176335 (Version 1)
Quarter: 2025Q2

REPORT INFORMATION
  Report Type: Spontaneous
  Country: US (occurrence: US)
  Receive Date: 20250409
  Receipt Date: 20250409
  Transmission Date: 20250716
  Serious: No
  Sender: AMGEN
  Company Number: US-AMGEN-USASP2025065916

PATIENT
  Age: 39 Year
  Sex: Male
  Weight: 93 kg

DRUGS (2)
  1. PREDNISONE [Suspect]
     Active Substance: PREDNISONE
     Indication: Alanine aminotransferase increased
     Dosage: 40 MILLIGRAM, QD (6 WEEKS)
     Route: 048
     Dates: start: 20210216
  2. PREDNISONE [Suspect]
     Active Substance: PREDNISONE
     Indication: Prophylaxis

REACTIONS (6)
  - Blood triglycerides increased [Unknown]
  - Blood insulin abnormal [Recovered/Resolved]
  - Cortisol abnormal [Unknown]
  - Adverse event [Unknown]
  - Off label use [Unknown]
  - Hepatic enzyme increased [Recovered/Resolved]

NARRATIVE: CASE EVENT DATE: 20210216
